FAERS Safety Report 7145536-8 (Version None)
Quarter: 2010Q4

REPORT INFORMATION
  Report Type: 
  Country: None (occurrence: None)
  Receive Date: 20101208
  Receipt Date: 20101116
  Transmission Date: 20110411
  Serious: No
  Sender: FDA-Public Use
  Company Number: US-PFIZER INC-2010139848

PATIENT
  Age: 42 Year
  Sex: Male

DRUGS (1)
  1. LIPITOR [Suspect]
     Indication: LIPIDS
     Dosage: 20 MG, UNK
     Route: 048
     Dates: start: 20101008, end: 20101023

REACTIONS (1)
  - GENITAL PAIN [None]
